FAERS Safety Report 5199131-0 (Version None)
Quarter: 2006Q4

REPORT INFORMATION
  Report Type: 
  Country: None (occurrence: None)
  Receive Date: 20060919
  Receipt Date: 20051221
  Transmission Date: 20070319
  Serious: Yes (Other)
  Sender: FDA-Public Use
  Company Number: HQWYE148423DEC05

PATIENT
  Age: 33 Year
  Sex: Female
  Weight: 86.26 kg

DRUGS (3)
  1. ADVIL [Suspect]
     Indication: EXOSTOSIS
     Dosage: 3 CAPSULES TWICE DAILY, THEN 2 CAPSULES DAILY, ORAL
     Route: 048
     Dates: start: 20051127, end: 20051128
  2. ADVIL [Suspect]
     Indication: PLANTAR FASCIITIS
     Dosage: 3 CAPSULES TWICE DAILY, THEN 2 CAPSULES DAILY, ORAL
     Route: 048
     Dates: start: 20051127, end: 20051128
  3. UNSPECIFIED CONTRACEPTIVE (UNSPECIFIED CONTRACEPTIVE) [Concomitant]

REACTIONS (1)
  - FAECES DISCOLOURED [None]
